FAERS Safety Report 20438596 (Version 1)
Quarter: 2022Q1

REPORT INFORMATION
  Report Type: Report from Study
  Country: TH (occurrence: TH)
  Receive Date: 20220207
  Receipt Date: 20220207
  Transmission Date: 20220423
  Serious: Yes (Other)
  Sender: FDA-Public Use
  Company Number: TH-JNJFOC-20211006808

PATIENT
  Sex: Female

DRUGS (2)
  1. BORTEZOMIB [Suspect]
     Active Substance: BORTEZOMIB
     Indication: Plasma cell myeloma
     Dosage: UNK
     Route: 065
     Dates: start: 20210906, end: 20220104
  2. DARZALEX [Suspect]
     Active Substance: DARATUMUMAB
     Indication: Plasma cell myeloma
     Dosage: UNK
     Route: 065
     Dates: start: 20210906, end: 20220104

REACTIONS (5)
  - Plasma cell myeloma [Unknown]
  - Headache [Unknown]
  - Fatigue [Unknown]
  - Skin mass [Not Recovered/Not Resolved]
  - Limb mass [Not Recovered/Not Resolved]
